FAERS Safety Report 24692969 (Version 3)
Quarter: 2024Q4

REPORT INFORMATION
  Report Type: Spontaneous
  Country: BR (occurrence: BR)
  Receive Date: 20241203
  Receipt Date: 20241217
  Transmission Date: 20250114
  Serious: Yes (Other)
  Sender: PURDUE
  Company Number: BR-NAPPMUNDI-GBR-2024-0121658

PATIENT
  Sex: Female

DRUGS (5)
  1. BUPRENORPHINE [Suspect]
     Active Substance: BUPRENORPHINE
     Indication: Spinal pain
     Dosage: 10 MILLIGRAM
     Route: 062
     Dates: start: 20241118, end: 20241121
  2. BUPRENORPHINE [Suspect]
     Active Substance: BUPRENORPHINE
     Indication: Sciatica
  3. DIVENA [Concomitant]
     Indication: Gastritis
     Dosage: 40 MILLIGRAM
     Route: 065
  4. HYDROCHLOROTHIAZIDE [Concomitant]
     Active Substance: HYDROCHLOROTHIAZIDE
     Indication: Blood pressure measurement
     Dosage: 25 MILLIGRAM
     Route: 065
  5. LEVOTHYROXINE SODIUM [Concomitant]
     Active Substance: LEVOTHYROXINE SODIUM
     Indication: Hypothyroidism
     Dosage: 50 MCG
     Route: 065

REACTIONS (6)
  - Nausea [Recovered/Resolved]
  - Malaise [Recovered/Resolved]
  - Constipation [Recovered/Resolved]
  - Feeding disorder [Recovered/Resolved]
  - Retching [Recovered/Resolved]
  - Blood pressure increased [Recovered/Resolved]

NARRATIVE: CASE EVENT DATE: 20241121
